FAERS Safety Report 4881676-1 (Version None)
Quarter: 2006Q1

REPORT INFORMATION
  Report Type: 
  Country: None (occurrence: None)
  Receive Date: 20060112
  Receipt Date: 20060112
  Transmission Date: 20060701
  Serious: Yes (Disabling)
  Sender: FDA-Public Use
  Company Number: None

PATIENT
  Age: 32 Year
  Sex: Female
  Weight: 74.8435 kg

DRUGS (1)
  1. LANTUS [Suspect]
     Indication: DIABETES MELLITUS
     Dosage: 30   1 X     IV
     Route: 042
     Dates: start: 20051010, end: 20060110

REACTIONS (3)
  - BONE EROSION [None]
  - DENTAL CARIES [None]
  - TOOTH DISORDER [None]
